FAERS Safety Report 26054795 (Version 2)
Quarter: 2025Q4

REPORT INFORMATION
  Report Type: Spontaneous
  Country: CH (occurrence: None)
  Receive Date: 20251117
  Receipt Date: 20251120
  Transmission Date: 20260117
  Serious: No
  Sender: AMERICAN REGENT
  Company Number: CH-AMERICAN REGENT INC-2025004027

PATIENT
  Age: 28 Year
  Sex: Female

DRUGS (2)
  1. FERINJECT [Suspect]
     Active Substance: FERRIC CARBOXYMALTOSE
     Indication: Anaemia of pregnancy
     Dosage: 500 MILLIGRAM
     Route: 065
  2. FERINJECT [Suspect]
     Active Substance: FERRIC CARBOXYMALTOSE
     Dosage: UNK
     Route: 065

REACTIONS (5)
  - Swelling [Unknown]
  - Infusion site extravasation [Unknown]
  - Infusion site discolouration [Not Recovered/Not Resolved]
  - Maternal exposure during pregnancy [Unknown]
  - Paravenous drug administration [Unknown]

NARRATIVE: CASE EVENT DATE: 20250101
